FAERS Safety Report 6155265-5 (Version None)
Quarter: 2009Q2

REPORT INFORMATION
  Report Type: 
  Country: None (occurrence: None)
  Receive Date: 20090415
  Receipt Date: 20090406
  Transmission Date: 20091009
  Serious: Yes (Disabling)
  Sender: FDA-Public Use
  Company Number: JP-ASTRAZENECA-2009SE01476

PATIENT
  Sex: Female

DRUGS (3)
  1. AMIAS 16MG TABLETS [Suspect]
     Indication: HYPERTENSION
     Route: 048
     Dates: start: 20080402, end: 20090119
  2. ASPIRIN [Concomitant]
     Indication: HYPERTENSION
     Route: 048
     Dates: start: 20060701
  3. BENDROFLUMETHIAZIDE [Concomitant]
     Indication: HYPERTENSION
     Route: 048

REACTIONS (3)
  - DYSPNOEA EXERTIONAL [None]
  - MALAISE [None]
  - WEIGHT INCREASED [None]
